FAERS Safety Report 5668944-0 (Version None)
Quarter: 2008Q1

REPORT INFORMATION
  Report Type: 
  Country: None (occurrence: None)
  Receive Date: 20080317
  Receipt Date: 20080310
  Transmission Date: 20080703
  Serious: Yes (Hospitalization)
  Sender: FDA-Public Use
  Company Number: FR-SANOFI-SYNTHELABO-F01200800358

PATIENT
  Sex: Male

DRUGS (3)
  1. RITUXIMAB [Suspect]
     Dosage: 375 MG/M2 ON DAY 1, Q2W UNK
     Route: 041
  2. GEMCITABINE [Suspect]
     Dosage: 1000 MG/M2 ON DAY 2, Q2W UNK
     Route: 041
  3. OXALIPLATIN [Suspect]
     Indication: DIFFUSE LARGE B-CELL LYMPHOMA REFRACTORY
     Dosage: 100 MG/M2 ON DAY 2, Q2W UNK
     Route: 041

REACTIONS (2)
  - CARDIOMYOPATHY [None]
  - PULMONARY OEDEMA [None]
